FAERS Safety Report 5654064-8 (Version None)
Quarter: 2008Q1

REPORT INFORMATION
  Report Type: 
  Country: None (occurrence: None)
  Receive Date: 20080306
  Receipt Date: 20080223
  Transmission Date: 20080703
  Serious: Yes (Disabling, Other)
  Sender: FDA-Public Use
  Company Number: US-PFIZER INC-2008017525

PATIENT
  Sex: Female
  Weight: 72.727 kg

DRUGS (7)
  1. LYRICA [Suspect]
     Indication: HERPES ZOSTER
  2. KEPPRA [Concomitant]
  3. PLAVIX [Concomitant]
  4. LISINOPRIL [Concomitant]
  5. TOPROL [Concomitant]
  6. ASPIRIN [Concomitant]
  7. SIMVASTATIN [Concomitant]

REACTIONS (3)
  - ABASIA [None]
  - OEDEMA PERIPHERAL [None]
  - SOMNOLENCE [None]
